FAERS Safety Report 7579051-4 (Version None)
Quarter: 2011Q2

REPORT INFORMATION
  Report Type: 
  Country: None (occurrence: None)
  Receive Date: 20110628
  Receipt Date: 20110621
  Transmission Date: 20111010
  Serious: Yes (Other)
  Sender: FDA-Public Use
  Company Number: CHPA2011NL08390

PATIENT
  Sex: Male
  Weight: 65 kg

DRUGS (2)
  1. CLEMASTINE FUMARATE [Suspect]
     Dosage: 1 MG, BID
     Route: 048
     Dates: start: 20100701, end: 20100715
  2. CLEMASTINE FUMARATE [Suspect]
     Dosage: UNK, UNK
     Route: 065
     Dates: start: 19840101, end: 19840101

REACTIONS (1)
  - HALLUCINATION, VISUAL [None]
